FAERS Safety Report 23487764 (Version 1)
Quarter: 2024Q1

REPORT INFORMATION
  Report Type: Spontaneous
  Country: US (occurrence: None)
  Receive Date: 20240205
  Receipt Date: 20240205
  Transmission Date: 20240410
  Serious: No
  Sender: FDA-Public Use
  Company Number: None

PATIENT
  Age: 41 Year
  Sex: Female
  Weight: 180.9 kg

DRUGS (10)
  1. ZEPBOUND [Suspect]
     Active Substance: TIRZEPATIDE
     Indication: Obesity
     Dosage: FREQUENCY : WEEKLY;?
     Route: 058
     Dates: start: 20240203, end: 20240203
  2. BUPROPION [Concomitant]
     Active Substance: BUPROPION
  3. CELEXA [Concomitant]
     Active Substance: CITALOPRAM HYDROBROMIDE
  4. DICLOFENAC [Concomitant]
     Active Substance: DICLOFENAC
  5. CYCLOBENZAPRINE [Concomitant]
     Active Substance: CYCLOBENZAPRINE
  6. IPRATROPIUM [Concomitant]
     Active Substance: IPRATROPIUM
  7. HYDROCHLOROTHIAZIDE [Concomitant]
     Active Substance: HYDROCHLOROTHIAZIDE
  8. DEVICE [Concomitant]
     Active Substance: DEVICE
  9. VITAMIN D NOS [Concomitant]
     Active Substance: VITAMIN D NOS
  10. LORATADINE [Concomitant]
     Active Substance: LORATADINE

REACTIONS (9)
  - Hot flush [None]
  - Heart rate increased [None]
  - Dizziness [None]
  - Cold sweat [None]
  - Chills [None]
  - Tremor [None]
  - Panic attack [None]
  - Middle insomnia [None]
  - Erythema [None]

NARRATIVE: CASE EVENT DATE: 20240203
